FAERS Safety Report 22773879 (Version 6)
Quarter: 2024Q3

REPORT INFORMATION
  Report Type: Spontaneous
  Country: MX (occurrence: MX)
  Receive Date: 20230801
  Receipt Date: 20240709
  Transmission Date: 20241016
  Serious: Yes (Other)
  Sender: PFIZER
  Company Number: MX-PFIZER INC-PV202300131325

PATIENT
  Age: 2 Year
  Sex: Male

DRUGS (1)
  1. BENEFIX [Suspect]
     Active Substance: COAGULATION FACTOR IX RECOMBINANT HUMAN\ISOPROPYL ALCOHOL
     Dosage: 500 IU, WEEKLY
     Route: 042

REACTIONS (7)
  - Haemarthrosis [Recovered/Resolved]
  - Oedema peripheral [Recovered/Resolved]
  - Autism spectrum disorder [Unknown]
  - Haematoma [Recovered/Resolved]
  - Haematoma [Unknown]
  - Underweight [Unknown]
  - Haematoma [Unknown]

NARRATIVE: CASE EVENT DATE: 20230717
